FAERS Safety Report 18445396 (Version 1)
Quarter: 2020Q4

REPORT INFORMATION
  Report Type: Spontaneous
  Country: US (occurrence: US)
  Receive Date: 20201030
  Receipt Date: 20201030
  Transmission Date: 20210114
  Serious: Yes (Hospitalization)
  Sender: FDA-Public Use
  Company Number: US-TORRENT-00010518

PATIENT
  Age: 34 Year
  Sex: Male

DRUGS (3)
  1. AMPHETAMINE [Suspect]
     Active Substance: AMPHETAMINE
     Indication: ATTENTION DEFICIT HYPERACTIVITY DISORDER
     Dosage: UNKNOWN
  2. OLANZAPINE. [Suspect]
     Active Substance: OLANZAPINE
     Indication: SCHIZOPHRENIA
     Dosage: UNKNOWN
  3. ACETAMINOPHEN. [Suspect]
     Active Substance: ACETAMINOPHEN
     Indication: PRODUCT USED FOR UNKNOWN INDICATION
     Dosage: UNKNOWN

REACTIONS (8)
  - Metabolic acidosis [Unknown]
  - Blood creatine phosphokinase increased [Recovered/Resolved]
  - Aldolase increased [Unknown]
  - Blood lactate dehydrogenase increased [Unknown]
  - Blood lactic acid increased [Unknown]
  - Myoglobin blood increased [Unknown]
  - Leukocytosis [Unknown]
  - Transaminases increased [Unknown]
